FAERS Safety Report 4760905-9 (Version None)
Quarter: 2005Q3

REPORT INFORMATION
  Report Type: 
  Country: None (occurrence: None)
  Receive Date: 20050901
  Receipt Date: 20050721
  Transmission Date: 20060218
  Serious: No
  Sender: FDA-Public Use
  Company Number: RENA-11505

PATIENT
  Age: 82 Year
  Sex: Male
  Weight: 80.5 kg

DRUGS (8)
  1. RENAGEL [Suspect]
     Indication: HYPERPHOSPHATAEMIA
     Dates: start: 20031219
  2. HECTOROL [Suspect]
     Indication: HYPERPARATHYROIDISM SECONDARY
     Dosage: 3 MG 3X/W IV
     Route: 042
  3. COUMADIN [Concomitant]
  4. PLAVIX [Concomitant]
  5. ALTACE [Concomitant]
  6. DIGOXIN [Concomitant]
  7. RENAVITE [Concomitant]
  8. LASIX [Concomitant]

REACTIONS (3)
  - BLOOD PRESSURE DECREASED [None]
  - THROAT TIGHTNESS [None]
  - UNRESPONSIVE TO VERBAL STIMULI [None]
